FAERS Safety Report 18188982 (Version 2)
Quarter: 2020Q3

REPORT INFORMATION
  Report Type: Report from Study
  Country: US (occurrence: US)
  Receive Date: 20200824
  Receipt Date: 20200914
  Transmission Date: 20201103
  Serious: Yes (Hospitalization, Other)
  Sender: FDA-Public Use
  Company Number: US-EISAI MEDICAL RESEARCH-EC-2020-075449

PATIENT
  Age: 61 Year
  Sex: Male
  Weight: 89 kg

DRUGS (14)
  1. KEPPRA [Concomitant]
     Active Substance: LEVETIRACETAM
  2. GLIPIZIDE. [Concomitant]
     Active Substance: GLIPIZIDE
  3. LENVIMA [Suspect]
     Active Substance: LENVATINIB
     Route: 048
     Dates: start: 202006, end: 202008
  4. ATENOLOL. [Concomitant]
     Active Substance: ATENOLOL
  5. LEVETIRACETAM. [Concomitant]
     Active Substance: LEVETIRACETAM
  6. LENVIMA [Suspect]
     Active Substance: LENVATINIB
     Indication: RENAL CANCER
     Route: 048
     Dates: start: 20200508, end: 202006
  7. ELIQUIS [Concomitant]
     Active Substance: APIXABAN
  8. LISINOPRIL. [Concomitant]
     Active Substance: LISINOPRIL
  9. PERCOCET [Concomitant]
     Active Substance: ACETAMINOPHEN\OXYCODONE HYDROCHLORIDE
  10. DILTIAZEM ER [Concomitant]
     Active Substance: DILTIAZEM
  11. ATORVASTATIN [Concomitant]
     Active Substance: ATORVASTATIN
  12. KEYTRUDA [Concomitant]
     Active Substance: PEMBROLIZUMAB
  13. SOTALOL. [Concomitant]
     Active Substance: SOTALOL
  14. MORPHINE [Concomitant]
     Active Substance: MORPHINE

REACTIONS (13)
  - Memory impairment [Unknown]
  - Hypotension [Not Recovered/Not Resolved]
  - Hypersomnia [Unknown]
  - Nausea [Not Recovered/Not Resolved]
  - Vomiting [Not Recovered/Not Resolved]
  - Blood pressure increased [Not Recovered/Not Resolved]
  - Cardiac disorder [Not Recovered/Not Resolved]
  - Myocardial infarction [Not Recovered/Not Resolved]
  - Septic shock [Not Recovered/Not Resolved]
  - Dizziness [Unknown]
  - Back pain [Unknown]
  - Arthralgia [Unknown]
  - Malaise [Recovering/Resolving]

NARRATIVE: CASE EVENT DATE: 2020
